FAERS Safety Report 23699982 (Version 1)
Quarter: 2024Q2

REPORT INFORMATION
  Report Type: Spontaneous
  Country: US (occurrence: US)
  Receive Date: 20240403
  Receipt Date: 20240403
  Transmission Date: 20240715
  Serious: Yes (Other)
  Sender: FDA-Public Use
  Company Number: HIKM2401777

PATIENT
  Age: 59 Year
  Sex: Male
  Weight: 77.098 kg

DRUGS (2)
  1. INFUMORPH [Suspect]
     Active Substance: MORPHINE SULFATE
     Indication: Spinal pain
     Dosage: 3.593 MILLIGRAM, QD
     Route: 037
  2. BACLOFEN [Concomitant]
     Active Substance: BACLOFEN
     Indication: Product used for unknown indication
     Dosage: 1.027 MILLIGRAM, QD
     Route: 065

REACTIONS (6)
  - Overdose [Unknown]
  - Sepsis [Unknown]
  - Medication error [Unknown]
  - Wrong product administered [Unknown]
  - Underdose [Unknown]
  - Unresponsive to stimuli [Unknown]

NARRATIVE: CASE EVENT DATE: 20240128
